FAERS Safety Report 17652258 (Version 1)
Quarter: 2020Q2

REPORT INFORMATION
  Report Type: Spontaneous
  Country: US (occurrence: US)
  Receive Date: 20200409
  Receipt Date: 20200409
  Transmission Date: 20200713
  Serious: Yes (Hospitalization, Other)
  Sender: FDA-Public Use
  Company Number: US-ASTRAZENECA-2018SF47893

PATIENT
  Age: 54 Year
  Sex: Female
  Weight: 72.6 kg

DRUGS (33)
  1. PEPCID [Concomitant]
     Active Substance: FAMOTIDINE
  2. BEXTRA [Concomitant]
     Active Substance: VALDECOXIB
     Indication: INFLAMMATION
     Dates: start: 2003, end: 2004
  3. VOLTAREN [Concomitant]
     Active Substance: DICLOFENAC SODIUM
     Indication: PAIN
     Dates: start: 2008
  4. PRILOSEC OTC [Suspect]
     Active Substance: OMEPRAZOLE MAGNESIUM
     Indication: GASTROOESOPHAGEAL REFLUX DISEASE
     Route: 048
     Dates: start: 200910
  5. CELEBREX [Concomitant]
     Active Substance: CELECOXIB
     Indication: ARTHRALGIA
     Dates: start: 2004
  6. NAPROXEN. [Concomitant]
     Active Substance: NAPROXEN
  7. TIZANIDINE. [Concomitant]
     Active Substance: TIZANIDINE
  8. MULTIVITAMIN [Concomitant]
     Active Substance: VITAMINS
  9. PROPRANOLOL [Concomitant]
     Active Substance: PROPRANOLOL HYDROCHLORIDE
     Indication: MIGRAINE
     Dates: start: 2010
  10. CLARITHROMYCIN. [Concomitant]
     Active Substance: CLARITHROMYCIN
     Indication: INFECTION
     Dates: start: 2009
  11. SULFAMETHOXAZOL [Concomitant]
     Active Substance: SULFAMETHOXAZOLE
  12. BISACODYL. [Concomitant]
     Active Substance: BISACODYL
  13. CITALOPRAM [Concomitant]
     Active Substance: CITALOPRAM HYDROBROMIDE
  14. PREVACID 24 HR [Suspect]
     Active Substance: LANSOPRAZOLE
     Indication: GASTROOESOPHAGEAL REFLUX DISEASE
     Route: 065
     Dates: start: 2000, end: 2013
  15. RED YEAST [Concomitant]
     Active Substance: YEAST
     Indication: BLOOD CHOLESTEROL INCREASED
     Dates: start: 2019
  16. DIAZEPAM. [Concomitant]
     Active Substance: DIAZEPAM
  17. BENADRYL [Concomitant]
     Active Substance: DIPHENHYDRAMINE HYDROCHLORIDE
     Indication: HYPERSENSITIVITY
     Dates: start: 2008
  18. FLONASE [Concomitant]
     Active Substance: FLUTICASONE PROPIONATE
     Indication: HYPERSENSITIVITY
     Dates: start: 2005
  19. PROBIOTIC [Concomitant]
     Active Substance: PROBIOTICS NOS
     Indication: DYSPEPSIA
  20. ZANTAC [Concomitant]
     Active Substance: RANITIDINE HYDROCHLORIDE
  21. NAPROXEN. [Concomitant]
     Active Substance: NAPROXEN
     Indication: INFLAMMATION
     Dates: start: 2007, end: 2012
  22. DEXILANT [Suspect]
     Active Substance: DEXLANSOPRAZOLE
     Indication: GASTROOESOPHAGEAL REFLUX DISEASE
     Route: 065
     Dates: start: 2008, end: 2018
  23. LISINOPRIL. [Concomitant]
     Active Substance: LISINOPRIL
     Indication: HYPERTENSION
     Dates: start: 2005
  24. REQUIP [Concomitant]
     Active Substance: ROPINIROLE HYDROCHLORIDE
     Indication: GASTROOESOPHAGEAL REFLUX DISEASE
     Dates: start: 2008, end: 2018
  25. FLUCONAZOLE. [Concomitant]
     Active Substance: FLUCONAZOLE
  26. AMOXICILLIN. [Concomitant]
     Active Substance: AMOXICILLIN
  27. NABUMETONE. [Concomitant]
     Active Substance: NABUMETONE
  28. BEXTRA [Concomitant]
     Active Substance: VALDECOXIB
     Indication: PAIN
     Dates: start: 2003, end: 2004
  29. VOLTAREN [Concomitant]
     Active Substance: DICLOFENAC SODIUM
     Indication: INFLAMMATION
     Dates: start: 2008
  30. NAPROXEN. [Concomitant]
     Active Substance: NAPROXEN
     Indication: PAIN
     Dates: start: 2007, end: 2012
  31. FLUOXETINE [Concomitant]
     Active Substance: FLUOXETINE HYDROCHLORIDE
  32. ROPINIROLE. [Concomitant]
     Active Substance: ROPINIROLE
  33. AMRIX [Concomitant]
     Active Substance: CYCLOBENZAPRINE HYDROCHLORIDE

REACTIONS (4)
  - Chronic kidney disease [Not Recovered/Not Resolved]
  - Renal injury [Unknown]
  - Renal impairment [Unknown]
  - Acute kidney injury [Unknown]

NARRATIVE: CASE EVENT DATE: 2014
